FAERS Safety Report 6327517-7 (Version None)
Quarter: 2009Q3

REPORT INFORMATION
  Report Type: 
  Country: None (occurrence: None)
  Receive Date: 20090825
  Receipt Date: 20090813
  Transmission Date: 20100115
  Serious: Yes (Other)
  Sender: FDA-Public Use
  Company Number: PHHY2009IE34551

PATIENT
  Sex: Male

DRUGS (2)
  1. CLOZARIL [Suspect]
     Indication: SCHIZOPHRENIA
     Dosage: 450 MG, UNK
     Dates: start: 19931019
  2. CLOZARIL [Suspect]
     Dosage: 400 MG, UNK

REACTIONS (6)
  - CONTUSION [None]
  - DEHYDRATION [None]
  - FALL [None]
  - HEART RATE INCREASED [None]
  - PALPITATIONS [None]
  - SYNCOPE [None]
